FAERS Safety Report 17745504 (Version 1)
Quarter: 2020Q2

REPORT INFORMATION
  Report Type: Spontaneous
  Country: US (occurrence: US)
  Receive Date: 20200501
  Receipt Date: 20200501
  Transmission Date: 20200714
  Serious: No
  Sender: FDA-Public Use
  Company Number: None

PATIENT
  Age: 25 Year
  Sex: Female
  Weight: 43.2 kg

DRUGS (4)
  1. LIPOTROPIC [AMINO ACIDS\MINERALS\VITAMINS] [Suspect]
     Active Substance: AMINO ACIDS\MINERALS\VITAMINS
     Indication: ASTHENIA
     Dosage: ?          QUANTITY:1 INJECTION(S);OTHER ROUTE:INTRAMUSCULAR INJECTION INTO BUTTOCKS?
     Dates: start: 20200423, end: 20200423
  2. BIOTIN [Suspect]
     Active Substance: BIOTIN
     Indication: VITAMIN SUPPLEMENTATION
     Dosage: ?          QUANTITY:1 INJECTION(S);OTHER ROUTE:INTRAMUSCULAR INJECTION INTO BUTTOCKS?
     Dates: start: 20200423, end: 20200423
  3. COLLAGEN GUMMIES [Concomitant]
  4. LIPOTROPIC [AMINO ACIDS\MINERALS\VITAMINS] [Suspect]
     Active Substance: AMINO ACIDS\MINERALS\VITAMINS
     Indication: WEIGHT CONTROL
     Dosage: ?          QUANTITY:1 INJECTION(S);OTHER ROUTE:INTRAMUSCULAR INJECTION INTO BUTTOCKS?
     Dates: start: 20200423, end: 20200423

REACTIONS (7)
  - Malaise [None]
  - Pharyngeal hypoaesthesia [None]
  - Alopecia [None]
  - Injection site pain [None]
  - Pain [None]
  - Anxiety [None]
  - Oropharyngeal pain [None]

NARRATIVE: CASE EVENT DATE: 20200423
